FAERS Safety Report 10505016 (Version 2)
Quarter: 2014Q4

REPORT INFORMATION
  Report Type: Spontaneous
  Country: JP (occurrence: JP)
  Receive Date: 20141008
  Receipt Date: 20141023
  Transmission Date: 20150528
  Serious: Yes (Hospitalization)
  Sender: FDA-Public Use
  Company Number: JP-ACTELION-A-CH2014-106043

PATIENT
  Age: 72 Year
  Sex: Female
  Weight: 57 kg

DRUGS (10)
  1. PREDNISOLONE. [Concomitant]
     Active Substance: PREDNISOLONE
  2. OXYGEN. [Concomitant]
     Active Substance: OXYGEN
  3. IMIDAPRIL [Concomitant]
     Active Substance: IMIDAPRIL
  4. PRONASE [Concomitant]
  5. ALENDRONATE SODIUM. [Concomitant]
     Active Substance: ALENDRONATE SODIUM
  6. WARFARIN [Concomitant]
     Active Substance: WARFARIN
  7. KALLIDINOGENASE [Concomitant]
     Active Substance: KALLIDINOGENASE
  8. TRACLEER [Suspect]
     Active Substance: BOSENTAN\BOSENTAN MONOHYDRATE
     Indication: PULMONARY ARTERIAL HYPERTENSION
     Dosage: 62.5 MG, BID
     Route: 048
     Dates: start: 20140627, end: 20140814
  9. SILDENAFIL. [Concomitant]
     Active Substance: SILDENAFIL
  10. SODIUM RABEPRAZOLE [Concomitant]
     Active Substance: RABEPRAZOLE SODIUM

REACTIONS (7)
  - Hepatic function abnormal [Recovered/Resolved]
  - Chills [Recovered/Resolved]
  - Blood alkaline phosphatase increased [Recovered/Resolved]
  - Gamma-glutamyltransferase increased [Recovered/Resolved]
  - Alanine aminotransferase increased [Recovered/Resolved]
  - Aspartate aminotransferase increased [Recovered/Resolved]
  - Pyrexia [Recovered/Resolved]

NARRATIVE: CASE EVENT DATE: 20140814
